FAERS Safety Report 4316610-6 (Version None)
Quarter: 2004Q1

REPORT INFORMATION
  Report Type: 
  Country: None (occurrence: None)
  Receive Date: 20040311
  Receipt Date: 20031125
  Transmission Date: 20041129
  Serious: Yes (Death)
  Sender: FDA-Public Use
  Company Number: 2003AP01705

PATIENT
  Age: 68 Year
  Sex: Female

DRUGS (5)
  1. ARIMIDEX [Suspect]
     Indication: BREAST CANCER
     Dosage: 1 MG DAILY PO
     Route: 048
     Dates: start: 20020402, end: 20021231
  2. GASTER [Concomitant]
  3. PREDNISOLONE [Concomitant]
  4. THEOPHYLLINE [Concomitant]
  5. TULOBUTEROL [Concomitant]

REACTIONS (4)
  - CONDITION AGGRAVATED [None]
  - EMPHYSEMA [None]
  - HYPERCHOLESTEROLAEMIA [None]
  - RESPIRATORY FAILURE [None]
